FAERS Safety Report 8013753-0 (Version None)
Quarter: 2011Q4

REPORT INFORMATION
  Report Type: 
  Country: None (occurrence: None)
  Receive Date: 20111229
  Receipt Date: 20111216
  Transmission Date: 20120403
  Serious: Yes (Other)
  Sender: FDA-Public Use
  Company Number: US-ELI_LILLY_AND_COMPANY-US201108005438

PATIENT
  Sex: Female
  Weight: 65.76 kg

DRUGS (2)
  1. FORTEO [Suspect]
     Dosage: 20 UG, QD
     Route: 065
  2. FORTEO [Suspect]
     Indication: OSTEOPOROSIS
     Dosage: 20 UG, QD
     Route: 065
     Dates: start: 20110808

REACTIONS (8)
  - BLADDER NEOPLASM [None]
  - DRUG INEFFECTIVE [None]
  - BURNING SENSATION [None]
  - ARTHRITIS [None]
  - PAIN IN EXTREMITY [None]
  - MUSCLE SPASMS [None]
  - SCOLIOSIS [None]
  - BACK PAIN [None]
